FAERS Safety Report 13877890 (Version 1)
Quarter: 2017Q3

REPORT INFORMATION
  Report Type: Spontaneous
  Country: US (occurrence: US)
  Receive Date: 20170817
  Receipt Date: 20170817
  Transmission Date: 20171127
  Serious: Yes (Other)
  Sender: FDA-Public Use
  Company Number: US-ASTRAZENECA-2017SE81748

PATIENT
  Age: 464 Month
  Sex: Female
  Weight: 65.8 kg

DRUGS (1)
  1. SEROQUEL XR [Suspect]
     Active Substance: QUETIAPINE FUMARATE
     Indication: BIPOLAR DISORDER
     Dosage: STARTED AT 100MG THEN WEANING DOWN USING 50MG AND 25MG DAILY
     Route: 048
     Dates: start: 2013, end: 20170726

REACTIONS (13)
  - Costochondritis [Recovering/Resolving]
  - Chest pain [Recovering/Resolving]
  - Suicidal ideation [Recovering/Resolving]
  - Inflammation [Recovering/Resolving]
  - Dysphonia [Recovering/Resolving]
  - Rash erythematous [Recovering/Resolving]
  - Amnesia [Recovering/Resolving]
  - Lupus-like syndrome [Recovering/Resolving]
  - Facial spasm [Recovering/Resolving]
  - Depression [Recovering/Resolving]
  - Myalgia [Recovering/Resolving]
  - Insomnia [Unknown]
  - Muscle twitching [Recovering/Resolving]

NARRATIVE: CASE EVENT DATE: 201702
